FAERS Safety Report 17622033 (Version 1)
Quarter: 2020Q2

REPORT INFORMATION
  Report Type: Spontaneous
  Country: JP (occurrence: JP)
  Receive Date: 20200403
  Receipt Date: 20200403
  Transmission Date: 20200713
  Serious: Yes (Hospitalization, Other)
  Sender: FDA-Public Use
  Company Number: JP-PFIZER INC-2020136208

PATIENT
  Age: 54 Year
  Sex: Female

DRUGS (4)
  1. OLMESARTAN [Suspect]
     Active Substance: OLMESARTAN
     Dosage: 340 MG, UNK
  2. ETIZOLAM [Concomitant]
     Active Substance: ETIZOLAM
     Dosage: 4 MG, UNK
  3. AMLODIPINE BESILATE [Suspect]
     Active Substance: AMLODIPINE BESYLATE
     Dosage: 345 MG, UNK
  4. BROTIZOLAM [Concomitant]
     Active Substance: BROTIZOLAM
     Dosage: 0.75 MG, UNK

REACTIONS (4)
  - Overdose [Unknown]
  - Hypotension [Recovering/Resolving]
  - Shock [Recovering/Resolving]
  - Altered state of consciousness [Unknown]
